FAERS Safety Report 9269782 (Version 3)
Quarter: 2013Q2

REPORT INFORMATION
  Report Type: Report from Study
  Country: JP (occurrence: JP)
  Receive Date: 20130503
  Receipt Date: 20130604
  Transmission Date: 20140414
  Serious: Yes (Other)
  Sender: FDA-Public Use
  Company Number: JP-OTSUKA-JP-2013-11006

PATIENT
  Age: 99 Year
  Sex: Female

DRUGS (11)
  1. SAMSCA [Suspect]
     Indication: FLUID RETENTION
     Dosage: 7.5 MG MILLIGRAM(S), QAM
     Route: 048
     Dates: start: 20130325, end: 20130327
  2. MAINTATE [Concomitant]
     Indication: CARDIAC FAILURE
     Dosage: 1.25 MG MILLIGRAM(S), DAILY DOSE
     Route: 048
  3. BAYASPIRIN [Concomitant]
     Dosage: 100 MG MILLIGRAM(S), DAILY DOSE
     Route: 048
  4. TAKEPRON [Concomitant]
     Dosage: 30 MG MILLIGRAM(S), DAILY DOSE
     Route: 048
  5. ECARD COMBINATION [Concomitant]
     Dosage: 1 DF DOSAGE FORM, DAILY DOSE
     Route: 048
  6. ZYLORIC [Concomitant]
     Dosage: 100 MG MILLIGRAM(S), DAILY DOSE
     Route: 048
  7. FUROSEMIDE [Concomitant]
     Indication: CARDIAC FAILURE
     Dosage: 10 MG MILLIGRAM(S), DAILY DOSE
     Route: 048
  8. ACARDI [Concomitant]
     Indication: CARDIAC FAILURE
     Dosage: 3.75 MG MILLIGRAM(S), DAILY DOSE
     Route: 048
  9. MYOCOR [Concomitant]
     Indication: CARDIAC FAILURE
     Dosage: 6 MG MILLIGRAM(S), DAILY DOSE
     Route: 042
     Dates: start: 20130325
  10. CORETEC [Concomitant]
     Indication: CARDIAC FAILURE
     Dosage: 5.7 MG MILLIGRAM(S), DAILY DOSE
     Route: 042
     Dates: start: 20130325
  11. ROZECLART [Concomitant]
     Dosage: 2 G GRAM(S), DAILY DOSE
     Route: 042
     Dates: start: 20130325

REACTIONS (2)
  - Blood urea increased [Recovered/Resolved]
  - Blood sodium increased [Recovering/Resolving]
